FAERS Safety Report 7482281-3 (Version None)
Quarter: 2011Q2

REPORT INFORMATION
  Report Type: 
  Country: None (occurrence: None)
  Receive Date: 20110516
  Receipt Date: 20110510
  Transmission Date: 20111010
  Serious: No
  Sender: FDA-Public Use
  Company Number: US-PFIZER INC-2011100389

PATIENT
  Sex: Male
  Weight: 113 kg

DRUGS (10)
  1. LIPITOR [Suspect]
     Dosage: 80 MG, UNK
     Route: 048
     Dates: start: 20050101, end: 20110508
  2. HYDROCHLOROTHIAZIDE [Concomitant]
     Indication: BLOOD PRESSURE ABNORMAL
     Dosage: UNK
  3. MULTI-VITAMINS [Concomitant]
     Dosage: UNK
  4. SPIRONOLACTONE [Concomitant]
     Indication: CARDIAC ABLATION
     Dosage: UNK
  5. FERROUS SULFATE TAB [Concomitant]
     Dosage: UNK
  6. ACETYLSALICYLIC ACID [Concomitant]
     Dosage: 81 MG, UNK
  7. ACETAMINOPHEN [Concomitant]
     Dosage: UNK
  8. LISINOPRIL [Concomitant]
     Indication: BLOOD PRESSURE ABNORMAL
     Dosage: UNK
  9. FISH OIL [Concomitant]
     Dosage: UNK
  10. LIPITOR [Suspect]
     Indication: CORONARY ARTERY DISEASE
     Dosage: 10 MG, UNK
     Route: 048
     Dates: start: 20010101, end: 20050101

REACTIONS (3)
  - BACK PAIN [None]
  - MYALGIA [None]
  - MUSCLE SPASMS [None]
